FAERS Safety Report 18196138 (Version 1)
Quarter: 2020Q3

REPORT INFORMATION
  Report Type: Spontaneous
  Country: ES (occurrence: ES)
  Receive Date: 20200825
  Receipt Date: 20200825
  Transmission Date: 20201103
  Serious: Yes (Other)
  Sender: FDA-Public Use
  Company Number: ES-TEVA-2020-ES-1817459

PATIENT
  Age: 47 Year
  Sex: Female

DRUGS (1)
  1. COPAXONE [Suspect]
     Active Substance: GLATIRAMER ACETATE
     Indication: MULTIPLE SCLEROSIS
     Route: 058
     Dates: start: 201901

REACTIONS (11)
  - Loss of consciousness [Recovered/Resolved]
  - Feeling abnormal [Recovering/Resolving]
  - Fear [Recovering/Resolving]
  - Chest discomfort [Recovered/Resolved]
  - Chills [Recovering/Resolving]
  - Nervousness [Recovering/Resolving]
  - Photopsia [Recovered/Resolved]
  - Hemiparaesthesia [Recovering/Resolving]
  - Fatigue [Recovered/Resolved]
  - Immediate post-injection reaction [Recovered/Resolved]
  - Choking sensation [Recovered/Resolved]

NARRATIVE: CASE EVENT DATE: 20200814
